FAERS Safety Report 19776672 (Version 4)
Quarter: 2022Q2

REPORT INFORMATION
  Report Type: Report from Study
  Country: US (occurrence: US)
  Receive Date: 20210901
  Receipt Date: 20220426
  Transmission Date: 20220721
  Serious: Yes (Other)
  Sender: FDA-Public Use
  Company Number: US-KYOWAKIRIN-2021BKK014798

PATIENT

DRUGS (5)
  1. CRYSVITA [Suspect]
     Active Substance: BUROSUMAB-TWZA
     Indication: Hypophosphataemic osteomalacia
     Dosage: 40 MG, ONCE EVERY 30 DAYS
     Route: 058
     Dates: start: 20210624, end: 20210818
  2. CRYSVITA [Suspect]
     Active Substance: BUROSUMAB-TWZA
     Indication: Phosphorus metabolism disorder
     Dosage: 60 MG, ONCE EVERY 28 DAYS
     Route: 058
     Dates: start: 202111
  3. CRYSVITA [Suspect]
     Active Substance: BUROSUMAB-TWZA
     Dosage: 80 MG, ONCE EVERY 28 DAYS
     Route: 058
     Dates: start: 202110
  4. CRYSVITA [Suspect]
     Active Substance: BUROSUMAB-TWZA
     Dosage: 40 MG, ONCE EVERY 30 DAYS
     Route: 058
     Dates: start: 20210823, end: 20210823
  5. PHOSPHORUS [Suspect]
     Active Substance: PHOSPHORUS
     Indication: Asthenia
     Dosage: UNK
     Route: 065

REACTIONS (9)
  - Uterine leiomyoma [Unknown]
  - Feeling abnormal [Unknown]
  - Fatigue [Not Recovered/Not Resolved]
  - Asthenia [Unknown]
  - Arthralgia [Unknown]
  - Abdominal discomfort [Not Recovered/Not Resolved]
  - Vomiting [Not Recovered/Not Resolved]
  - Drug effect less than expected [Unknown]
  - Contraindicated product administered [Unknown]

NARRATIVE: CASE EVENT DATE: 20210101
